FAERS Safety Report 11438912 (Version 1)
Quarter: 2015Q3

REPORT INFORMATION
  Report Type: Spontaneous
  Country: US (occurrence: US)
  Receive Date: 20150901
  Receipt Date: 20150901
  Transmission Date: 20151125
  Serious: No
  Sender: FDA-Public Use
  Company Number: US-JNJFOC-20150808290

PATIENT
  Sex: Female

DRUGS (1)
  1. INFLIXIMAB, RECOMBINANT [Suspect]
     Active Substance: INFLIXIMAB
     Indication: GRANULOMA
     Route: 042

REACTIONS (4)
  - Cytomegalovirus infection [Unknown]
  - Therapeutic response unexpected [Unknown]
  - Epstein-Barr virus infection [Unknown]
  - Product use issue [Unknown]
